FAERS Safety Report 20889958 (Version 8)
Quarter: 2023Q1

REPORT INFORMATION
  Report Type: Report from Study
  Country: EG (occurrence: EG)
  Receive Date: 20220530
  Receipt Date: 20230107
  Transmission Date: 20230418
  Serious: Yes (Other)
  Sender: FDA-Public Use
  Company Number: EG-NOVARTISPH-NVSC2022EG121516

PATIENT
  Sex: Female

DRUGS (33)
  1. GILENYA [Suspect]
     Active Substance: FINGOLIMOD HYDROCHLORIDE
     Indication: Multiple sclerosis
     Dosage: 1 DOSAGE FORM, QD
     Route: 065
     Dates: start: 201503, end: 202103
  2. GILENYA [Suspect]
     Active Substance: FINGOLIMOD HYDROCHLORIDE
     Dosage: 1 DOSAGE FORM, QD
     Route: 048
     Dates: start: 2015, end: 20220802
  3. GILENYA [Suspect]
     Active Substance: FINGOLIMOD HYDROCHLORIDE
     Dosage: 1 DOSAGE FORM, QOD
     Route: 065
     Dates: start: 202103
  4. GILENYA [Suspect]
     Active Substance: FINGOLIMOD HYDROCHLORIDE
     Dosage: 2 DOSAGE FORM, QD (WHEN NEEDED)
     Route: 048
     Dates: start: 20220804
  5. GILENYA [Suspect]
     Active Substance: FINGOLIMOD HYDROCHLORIDE
     Dosage: 1 DOSAGE FORM, QD (10 YEARS AGO)
     Route: 048
  6. CALCIUM\VITAMIN D [Concomitant]
     Active Substance: CALCIUM\VITAMIN D
     Indication: Mineral supplementation
     Dosage: 1 DOSAGE FORM, QD
     Route: 048
     Dates: start: 202109
  7. CAL-MAG [Concomitant]
     Indication: Mineral supplementation
     Dosage: 1 DOSAGE FORM, BID
     Route: 048
     Dates: end: 202109
  8. OSTEOCARE [Concomitant]
     Active Substance: CALCIUM\CHOLECALCIFEROL\MAGNESIUM\ZINC
     Indication: Mineral supplementation
     Dosage: 1 DOSAGE FORM, TID
     Route: 048
     Dates: start: 202108
  9. OMEGA 3 PLUS [Concomitant]
     Indication: Vitamin supplementation
     Dosage: 1 DOSAGE FORM, TID
     Route: 048
     Dates: start: 2021
  10. OMEGA 3 [Concomitant]
     Active Substance: CAPSAICIN
     Indication: Vitamin supplementation
     Dosage: 1 DOSAGE FORM, QD (STOPPED 6 OR 12 MONTHSAGO)
     Route: 048
     Dates: start: 202111
  11. DEVIT [Concomitant]
     Indication: Vitamin supplementation
     Dosage: UNK, ONE AMP EVERY THREE MONTH
     Route: 048
     Dates: start: 202111, end: 2022
  12. NEUROTONE [Concomitant]
     Indication: Nerve injury
     Dosage: UNK, (THREE AMP PER WEEK)
     Route: 065
     Dates: start: 2015
  13. LIVABION [Concomitant]
     Indication: Nerve injury
     Dosage: UNK, (THREE AMP PER WEEK)
     Route: 048
     Dates: start: 202205
  14. LIVABION [Concomitant]
     Dosage: 1 DOSAGE FORM, QOD
     Route: 065
     Dates: start: 2022
  15. ALPRAZOLAM [Concomitant]
     Active Substance: ALPRAZOLAM
     Indication: Drug therapy enhancement
     Dosage: 1 DOSAGE FORM, QD, (0.25)
     Route: 048
     Dates: start: 202201
  16. ALPRAZOLAM [Concomitant]
     Active Substance: ALPRAZOLAM
     Indication: Antidepressant therapy
     Dosage: 1 DOSAGE FORM, QD (0.5)
     Route: 048
     Dates: start: 202203
  17. SEROQUEL [Concomitant]
     Active Substance: QUETIAPINE FUMARATE
     Indication: Antidepressant therapy
     Dosage: 1 DOSAGE FORM, QD
     Route: 048
     Dates: start: 2021, end: 2021
  18. TRIPLE OMEGA 3 6 9 [Concomitant]
     Indication: Disturbance in attention
     Dosage: UNK (STARTED IN JUN OR JUL 2022, -ONCE OR TWICE DAILY, SHE TOOK TWO CAPSULES WHEN SHE DID NOT TAKE G
     Route: 048
     Dates: start: 2022
  19. HAEMA CAPS [Concomitant]
     Indication: Product used for unknown indication
     Dosage: UNK, QD, WHILE AFTER ABORTION TWICE DAILY
     Route: 048
     Dates: start: 20220804
  20. UNSPECIFIED INGREDIENT [Concomitant]
     Active Substance: UNSPECIFIED INGREDIENT
     Indication: Product used for unknown indication
     Dosage: 1 DOSAGE FORM, BID
     Route: 048
     Dates: start: 2015, end: 2018
  21. TRYPTIZOL [Concomitant]
     Active Substance: AMITRIPTYLINE HYDROCHLORIDE
     Indication: Depression
     Dosage: 2 DOSAGE FORM, QD, ONE TABLET DAILY FOR  DEPRESSION(ACCORDING TO PATIENT NEEDS)
     Route: 048
     Dates: start: 202206
  22. TRYPTIZOL [Concomitant]
     Active Substance: AMITRIPTYLINE HYDROCHLORIDE
     Indication: Insomnia
  23. LAMISIL [Concomitant]
     Active Substance: TERBINAFINE HYDROCHLORIDE
     Indication: Fungal infection
     Dosage: UNK, FOUR TIMES PER DAY
     Route: 065
     Dates: start: 202209
  24. CANDISTAN [Concomitant]
     Indication: Fungal infection
     Dosage: UNK, FOUR TIMES PER DAY
     Route: 061
     Dates: start: 202209
  25. SULBUTIAMINE [Concomitant]
     Active Substance: SULBUTIAMINE
     Indication: Disturbance in attention
     Dosage: UNK, BID
     Route: 065
     Dates: start: 2015, end: 2019
  26. AMITRIPTYLINE HYDROCHLORIDE [Concomitant]
     Active Substance: AMITRIPTYLINE HYDROCHLORIDE
     Indication: Depression
     Dosage: UNK, END DATE NOT CONFIRMED DURING THE CALL
     Route: 048
     Dates: start: 202206
  27. DULOXETINE [Concomitant]
     Active Substance: DULOXETINE
     Indication: Feeling abnormal
     Dosage: UNK,END DATE : NOT CONFIRMED DURING THE CALL, WHEN NEEDED, ESPECIALLY BEFORE SLEEPING
     Route: 065
     Dates: start: 202206
  28. MULTIRELAX [Concomitant]
     Indication: Pain in extremity
     Dosage: UNK, BID END DATE:NOT MENTIONED DURING THE CALL, WICE DAILY FOR ONLY ONE DAY AND SHE DID NOT REPEAT
     Route: 065
     Dates: start: 202208
  29. NEUROTON [Concomitant]
     Indication: Nerve injury
     Dosage: 1 DOSAGE FORM, QOD,ONE AMPOULE EVERY OTHER DAY
     Route: 050
     Dates: start: 2015
  30. QUITAPEX [Concomitant]
     Indication: Immune system disorder
     Dosage: END DATE : NOT CONFIRMED DURING THE CALL
     Route: 065
     Dates: start: 2015
  31. OLAPEX [Concomitant]
     Indication: Product used for unknown indication
     Dosage: UNK, STARTED 10 DAYS AGO (ONE TABLET FOR THE FIRST 2 DAYS THEN ONE TABLET PER DAY)
     Route: 065
  32. VITAMIN D NOS [Concomitant]
     Active Substance: VITAMIN D NOS
     Indication: Product used for unknown indication
     Dosage: UNK
     Route: 065
  33. CALCIUM [Concomitant]
     Active Substance: CALCIUM
     Indication: Product used for unknown indication
     Dosage: UNK
     Route: 065

REACTIONS (39)
  - Gastrooesophageal reflux disease [Not Recovered/Not Resolved]
  - Vomiting [Not Recovered/Not Resolved]
  - Constipation [Not Recovered/Not Resolved]
  - Decreased appetite [Not Recovered/Not Resolved]
  - Skin discolouration [Not Recovered/Not Resolved]
  - Pigmentation disorder [Not Recovered/Not Resolved]
  - Injection site bruising [Not Recovered/Not Resolved]
  - Haemoglobin decreased [Unknown]
  - Body temperature increased [Not Recovered/Not Resolved]
  - Depression [Not Recovered/Not Resolved]
  - Hypertension [Not Recovered/Not Resolved]
  - Angina pectoris [Recovering/Resolving]
  - Urine protein/creatinine ratio increased [Unknown]
  - Myalgia [Not Recovered/Not Resolved]
  - Vitamin D decreased [Unknown]
  - Blood calcium decreased [Not Recovered/Not Resolved]
  - Gait disturbance [Not Recovered/Not Resolved]
  - Renal disorder [Unknown]
  - Osteoporosis [Not Recovered/Not Resolved]
  - Multiple sclerosis relapse [Not Recovered/Not Resolved]
  - Speech disorder [Not Recovered/Not Resolved]
  - Memory impairment [Not Recovered/Not Resolved]
  - Hypoaesthesia [Not Recovered/Not Resolved]
  - Pain [Not Recovered/Not Resolved]
  - Tremor [Not Recovered/Not Resolved]
  - Disturbance in attention [Not Recovered/Not Resolved]
  - Neuropathy peripheral [Not Recovered/Not Resolved]
  - Fall [Not Recovered/Not Resolved]
  - Movement disorder [Not Recovered/Not Resolved]
  - Back pain [Not Recovered/Not Resolved]
  - Limb discomfort [Not Recovered/Not Resolved]
  - Visual impairment [Not Recovered/Not Resolved]
  - Dysstasia [Not Recovered/Not Resolved]
  - Fatigue [Unknown]
  - Weight decreased [Not Recovered/Not Resolved]
  - Hypersensitivity [Not Recovered/Not Resolved]
  - Insomnia [Unknown]
  - Product packaging issue [Unknown]
  - Drug ineffective [Unknown]

NARRATIVE: CASE EVENT DATE: 20150101
